FAERS Safety Report 22963333 (Version 2)
Quarter: 2023Q4

REPORT INFORMATION
  Report Type: Spontaneous
  Country: US (occurrence: None)
  Receive Date: 20230920
  Receipt Date: 20231205
  Transmission Date: 20240110
  Serious: No
  Sender: FDA-Public Use
  Company Number: 2023A209496

PATIENT
  Sex: Male

DRUGS (1)
  1. BUDESONIDE\FORMOTEROL [Suspect]
     Active Substance: BUDESONIDE\FORMOTEROL
     Dosage: 160 UG, 2 PUFFS TWO TIMES A DAY
     Route: 055

REACTIONS (5)
  - Asthma [Unknown]
  - Device issue [Unknown]
  - Wrong technique in device usage process [Unknown]
  - Product use issue [Unknown]
  - Drug dose omission by device [Unknown]
